FAERS Safety Report 8289061-X (Version None)
Quarter: 2012Q2

REPORT INFORMATION
  Report Type: 
  Country: None (occurrence: None)
  Receive Date: 20120412
  Receipt Date: 20120330
  Transmission Date: 20120825
  Serious: Yes (Hospitalization)
  Sender: FDA-Public Use
  Company Number: IPC201203-00142

PATIENT
  Age: 49 Year
  Sex: Male

DRUGS (2)
  1. GLYBURIDE [Suspect]
     Indication: TYPE 2 DIABETES MELLITUS
     Dosage: 350 MG, ORAL
     Route: 048
  2. METFORMIN HYDROCHLORIDE [Suspect]
     Indication: TYPE 2 DIABETES MELLITUS
     Dosage: 52 G, ORAL
     Route: 048

REACTIONS (21)
  - HYPOGLYCAEMIA [None]
  - BLOOD CULTURE POSITIVE [None]
  - NAUSEA [None]
  - HYPERGLYCAEMIA [None]
  - OTITIS EXTERNA [None]
  - MULTIPLE DRUG OVERDOSE INTENTIONAL [None]
  - CULTURE URINE POSITIVE [None]
  - STREPTOCOCCAL INFECTION [None]
  - TINNITUS [None]
  - AREFLEXIA [None]
  - RENAL FAILURE ACUTE [None]
  - STAPHYLOCOCCAL INFECTION [None]
  - VERTIGO [None]
  - HYPOTENSION [None]
  - LEUKOCYTOSIS [None]
  - LACTIC ACIDOSIS [None]
  - HYPERNATRAEMIA [None]
  - DEAFNESS NEUROSENSORY [None]
  - DIARRHOEA [None]
  - THROMBOCYTOPENIA [None]
  - EAR PAIN [None]
